FAERS Safety Report 13585279 (Version 1)
Quarter: 2017Q2

REPORT INFORMATION
  Report Type: Spontaneous
  Country: US (occurrence: US)
  Receive Date: 20170526
  Receipt Date: 20170526
  Transmission Date: 20170830
  Serious: No
  Sender: FDA-Public Use
  Company Number: US-MALLINCKRODT-T201700065

PATIENT
  Sex: Male
  Weight: 82 kg

DRUGS (1)
  1. HYDROCODONE/ACETAMINOPHEN [Suspect]
     Active Substance: ACETAMINOPHEN\HYDROCODONE
     Indication: BACK DISORDER
     Dosage: 7.5MG/325MG, TID PRN
     Route: 048

REACTIONS (2)
  - Drug screen negative [Unknown]
  - Somnolence [Unknown]
